FAERS Safety Report 23149157 (Version 1)
Quarter: 2023Q4

REPORT INFORMATION
  Report Type: Spontaneous
  Country: US (occurrence: US)
  Receive Date: 20231106
  Receipt Date: 20231106
  Transmission Date: 20240109
  Serious: No
  Sender: FDA-Public Use
  Company Number: US-PARATEK PHARMACEUTICALS, INC.-2022PTK00376

PATIENT
  Age: 37 Year
  Sex: Female
  Weight: 45.351 kg

DRUGS (9)
  1. NUZYRA [Suspect]
     Active Substance: OMADACYCLINE
     Indication: Atypical mycobacterial infection
     Dosage: 450 MG, 1X/DAY X2 DAYS
     Route: 048
     Dates: start: 20221005, end: 20221006
  2. NUZYRA [Suspect]
     Active Substance: OMADACYCLINE
     Dosage: 300 MG, 1X/DAY
     Route: 048
     Dates: start: 20221007, end: 20221101
  3. IMIPENEM [Concomitant]
     Active Substance: IMIPENEM
  4. AZITHROMYCIN [Concomitant]
     Active Substance: AZITHROMYCIN
  5. TAMOXIFEN [Concomitant]
     Active Substance: TAMOXIFEN
  6. METRONIDAZOLE [Concomitant]
     Active Substance: METRONIDAZOLE
  7. DOXYCYCLINE [Concomitant]
     Active Substance: DOXYCYCLINE
  8. LINEZOLID [Concomitant]
     Active Substance: LINEZOLID
     Dosage: UNK
     Dates: start: 20221002
  9. ERYTHROMYCIN [Concomitant]
     Active Substance: ERYTHROMYCIN
     Dosage: UNK
     Dates: start: 20221002

REACTIONS (4)
  - Tooth discolouration [Recovering/Resolving]
  - Tongue discolouration [Recovering/Resolving]
  - Off label use [Recovered/Resolved]
  - Wrong technique in product usage process [Recovered/Resolved]

NARRATIVE: CASE EVENT DATE: 20221005
